FAERS Safety Report 4782708-1 (Version None)
Quarter: 2005Q3

REPORT INFORMATION
  Report Type: 
  Country: None (occurrence: None)
  Receive Date: 20050929
  Receipt Date: 20050811
  Transmission Date: 20060218
  Serious: Yes (Hospitalization)
  Sender: FDA-Public Use
  Company Number: 414067

PATIENT
  Age: 45 Year
  Sex: Female

DRUGS (6)
  1. COREG [Suspect]
     Indication: DRUG USE FOR UNKNOWN INDICATION
     Route: 065
  2. PLAVIX [Suspect]
     Indication: DRUG USE FOR UNKNOWN INDICATION
  3. ASPIRIN [Concomitant]
     Indication: DRUG USE FOR UNKNOWN INDICATION
  4. COUMADIN [Concomitant]
  5. LISINOPRIL [Concomitant]
     Dosage: 10MG PER DAY
  6. ZOCOR [Concomitant]
     Dosage: 20MG AT NIGHT

REACTIONS (1)
  - SYNCOPE [None]
